FAERS Safety Report 7730804-9 (Version None)
Quarter: 2011Q3

REPORT INFORMATION
  Report Type: 
  Country: None (occurrence: None)
  Receive Date: 20110906
  Receipt Date: 20110831
  Transmission Date: 20111222
  Serious: No
  Sender: FDA-Public Use
  Company Number: US-PFIZER INC-2011203723

PATIENT
  Sex: Female

DRUGS (5)
  1. RHINOCORT [Concomitant]
     Dosage: UNK
  2. LIPITOR [Concomitant]
     Dosage: UNK
  3. DETROL LA [Suspect]
     Indication: URINARY INCONTINENCE
     Dosage: 4 MG, 1X/DAY
     Route: 048
     Dates: start: 20081201
  4. LISINOPRIL [Concomitant]
     Dosage: UNK
  5. BUPROPION [Concomitant]
     Dosage: UNK

REACTIONS (1)
  - DRUG INEFFECTIVE [None]
